FAERS Safety Report 6115821-7 (Version None)
Quarter: 2009Q1

REPORT INFORMATION
  Report Type: 
  Country: None (occurrence: None)
  Receive Date: 20090311
  Receipt Date: 20090304
  Transmission Date: 20090719
  Serious: Yes (Hospitalization)
  Sender: FDA-Public Use
  Company Number: ADR0802009

PATIENT
  Age: 24 Year
  Sex: Male

DRUGS (1)
  1. CIPROFLOXACIN [Suspect]
     Indication: TYPHOID FEVER

REACTIONS (4)
  - CHILLS [None]
  - DRUG INEFFECTIVE [None]
  - NAUSEA [None]
  - PYREXIA [None]
